FAERS Safety Report 6279460-X (Version None)
Quarter: 2009Q3

REPORT INFORMATION
  Report Type: 
  Country: None (occurrence: None)
  Receive Date: 20090721
  Receipt Date: 20090706
  Transmission Date: 20100115
  Serious: Yes (Hospitalization)
  Sender: FDA-Public Use
  Company Number: 326709

PATIENT
  Age: 4 Month
  Sex: Male

DRUGS (3)
  1. (PHENYTOIN) [Suspect]
     Indication: EPILEPSY
     Dosage: 20 MG, 3 DAY, INTRAVENOUS
     Route: 042
     Dates: start: 20090423, end: 20090428
  2. (PHENOBARBITONE /00023201/) [Suspect]
     Dosage: 45 MG, 2 DAY, ORAL
     Route: 048
     Dates: start: 20090423, end: 20090428
  3. MORPHINE [Concomitant]

REACTIONS (3)
  - BLOOD BILIRUBIN INCREASED [None]
  - CHOLESTASIS [None]
  - LIVER FUNCTION TEST ABNORMAL [None]
